FAERS Safety Report 25800415 (Version 1)
Quarter: 2025Q3

REPORT INFORMATION
  Report Type: Spontaneous
  Country: US (occurrence: US)
  Receive Date: 20250915
  Receipt Date: 20250915
  Transmission Date: 20251020
  Serious: Yes (Other)
  Sender: SANOFI AVENTIS
  Company Number: US-SA-2025SA272695

PATIENT
  Age: 53 Year
  Sex: Male

DRUGS (1)
  1. DUPIXENT [Suspect]
     Active Substance: DUPILUMAB
     Dosage: 300MG, QOW
     Route: 058

REACTIONS (6)
  - Drug hypersensitivity [Unknown]
  - Vertigo [Unknown]
  - Rhinorrhoea [Unknown]
  - Urticaria [Unknown]
  - Injection site discolouration [Unknown]
  - Injection site urticaria [Unknown]
